FAERS Safety Report 23029807 (Version 1)
Quarter: 2023Q4

REPORT INFORMATION
  Report Type: Spontaneous
  Country: IT (occurrence: None)
  Receive Date: 20231004
  Receipt Date: 20231004
  Transmission Date: 20240110
  Serious: Yes (Hospitalization)
  Sender: FDA-Public Use
  Company Number: None

PATIENT
  Age: 53 Year
  Sex: Male

DRUGS (1)
  1. LENVIMA [Suspect]
     Active Substance: LENVATINIB
     Indication: Thyroid cancer
     Route: 048
     Dates: start: 20230622, end: 20230714

REACTIONS (9)
  - Decubitus ulcer [Unknown]
  - Fournier^s gangrene [Unknown]
  - Confusional state [Unknown]
  - Pyrexia [Unknown]
  - Abdominal pain [Unknown]
  - Malaise [Unknown]
  - Haemorrhage [Unknown]
  - Anal fistula [Unknown]
  - Erythema [Unknown]

NARRATIVE: CASE EVENT DATE: 20230710
